FAERS Safety Report 7877209-8 (Version None)
Quarter: 2011Q4

REPORT INFORMATION
  Report Type: 
  Country: None (occurrence: None)
  Receive Date: 20111031
  Receipt Date: 20111028
  Transmission Date: 20120403
  Serious: Yes (Death)
  Sender: FDA-Public Use
  Company Number: GXKR2011DE03153

PATIENT

DRUGS (4)
  1. CLOPIDOGREL [Suspect]
     Indication: CORONARY ARTERY THROMBOSIS
     Route: 048
     Dates: start: 20110609
  2. HEPARIN [Interacting]
     Indication: CORONARY ARTERY THROMBOSIS
     Route: 042
     Dates: start: 20110609
  3. REOPRO [Interacting]
     Indication: CORONARY ARTERY THROMBOSIS
     Route: 042
     Dates: start: 20110609
  4. ASPIRIN [Interacting]
     Indication: CORONARY ARTERY DISEASE
     Route: 048

REACTIONS (2)
  - RETROPERITONEAL HAEMORRHAGE [None]
  - SHOCK HAEMORRHAGIC [None]
